FAERS Safety Report 8839600 (Version 1)
Quarter: 2012Q4

REPORT INFORMATION
  Report Type: Spontaneous
  Country: US (occurrence: None)
  Receive Date: 20121011
  Receipt Date: 20121011
  Transmission Date: 20130627
  Serious: Yes (Other)
  Sender: FDA-Public Use
  Company Number: None

PATIENT
  Age: 66 Year
  Sex: Male
  Weight: 29.48 kg

DRUGS (1)
  1. SIMVASTATIN [Suspect]
     Indication: HIGH CHOLESTEROL
     Dates: start: 20090219, end: 20110419

REACTIONS (3)
  - Myalgia [None]
  - Muscle rupture [None]
  - Tremor [None]
